FAERS Safety Report 24773331 (Version 3)
Quarter: 2024Q4

REPORT INFORMATION
  Report Type: Spontaneous
  Country: US (occurrence: US)
  Receive Date: 20241225
  Receipt Date: 20241231
  Transmission Date: 20250115
  Serious: Yes (Other)
  Sender: SANOFI AVENTIS
  Company Number: US-SA-2024SA379830

PATIENT
  Age: 65 Year
  Sex: Male

DRUGS (2)
  1. ADMELOG [Suspect]
     Active Substance: INSULIN LISPRO
     Indication: Diabetes mellitus
     Dosage: UNK
  2. ADMELOG [Suspect]
     Active Substance: INSULIN LISPRO
     Dosage: TID

REACTIONS (4)
  - Cataract [Unknown]
  - Musculoskeletal discomfort [Unknown]
  - Blood glucose abnormal [Unknown]
  - Device mechanical issue [Unknown]
